FAERS Safety Report 7176475-4 (Version None)
Quarter: 2010Q4

REPORT INFORMATION
  Report Type: 
  Country: None (occurrence: None)
  Receive Date: 20101220
  Receipt Date: 20101213
  Transmission Date: 20110411
  Serious: Yes (Death, Hospitalization, Other)
  Sender: FDA-Public Use
  Company Number: NL-CELGENEUS-114-21880-10070910

PATIENT
  Sex: Male

DRUGS (5)
  1. REVLIMID [Suspect]
     Indication: LYMPHOMA
     Route: 048
     Dates: start: 20100607, end: 20100611
  2. REVLIMID [Suspect]
     Route: 048
     Dates: start: 20100121, end: 20100201
  3. REVLIMID [Suspect]
     Route: 048
     Dates: start: 20100218, end: 20100422
  4. REVLIMID [Suspect]
     Route: 048
  5. DEXAMETHASONE [Concomitant]
     Indication: LYMPHOMA
     Route: 065
     Dates: start: 20100121

REACTIONS (4)
  - GRAFT VERSUS HOST DISEASE [None]
  - LYMPHOMA [None]
  - MALIGNANT NEOPLASM PROGRESSION [None]
  - RASH [None]
